FAERS Safety Report 10640245 (Version 1)
Quarter: 2014Q4

REPORT INFORMATION
  Report Type: Spontaneous
  Country: US (occurrence: US)
  Receive Date: 20141209
  Receipt Date: 20141209
  Transmission Date: 20150529
  Serious: Yes (Other)
  Sender: FDA-Public Use
  Company Number: US-GLAXOSMITHKLINE-US2014GSK020529

PATIENT
  Age: 45 Year
  Sex: Female

DRUGS (2)
  1. MEKINIST [Suspect]
     Active Substance: TRAMETINIB DIMETHYL SULFOXIDE
     Indication: METASTATIC MALIGNANT MELANOMA
     Dosage: 2 MG, QD
     Route: 048
     Dates: start: 20141013, end: 20141104
  2. TAFINLAR [Suspect]
     Active Substance: DABRAFENIB MESYLATE
     Indication: METASTATIC MALIGNANT MELANOMA
     Dosage: 150 MG, BID
     Route: 048
     Dates: start: 20141013, end: 20141031

REACTIONS (7)
  - Painful respiration [Unknown]
  - Pyrexia [Recovered/Resolved]
  - Chromaturia [Unknown]
  - Pain in extremity [Unknown]
  - Eye pruritus [Unknown]
  - Oral candidiasis [Unknown]
  - Rash generalised [Unknown]

NARRATIVE: CASE EVENT DATE: 20141031
